FAERS Safety Report 7512511-0 (Version None)
Quarter: 2011Q2

REPORT INFORMATION
  Report Type: 
  Country: None (occurrence: None)
  Receive Date: 20110520
  Receipt Date: 20110512
  Transmission Date: 20111010
  Serious: Yes (Death)
  Sender: FDA-Public Use
  Company Number: GB-ACCORD-009145

PATIENT
  Age: 76 Year
  Sex: Male
  Weight: 80 kg

DRUGS (11)
  1. DIAZEPAM [Concomitant]
  2. SIMVASTATIN [Suspect]
     Indication: ACUTE MYOCARDIAL INFARCTION
     Dosage: 40.00 MG-1.00 TIMES PER 1.0 DAY, ORAL
     Route: 048
     Dates: start: 20110302, end: 20110308
  3. ASPIRIN [Concomitant]
  4. BISOPROLOL FUMARATE [Concomitant]
  5. VITAMIN B COMPOUND (VITAMIN B COMPOUND) [Concomitant]
  6. RAMIPRIL [Concomitant]
  7. THIAMINE (THIAMINE) [Concomitant]
  8. THYROXINE (THYROXINE) [Concomitant]
  9. CLOPIDOGREL [Suspect]
     Indication: ACUTE MYOCARDIAL INFARCTION
     Dosage: 75.00 MG -1.00 TIMES PER 1.0 DAYS, ORAL
     Route: 048
     Dates: start: 20110303, end: 20110308
  10. ALLOPURINOL [Concomitant]
  11. FUROSEMIDE [Suspect]
     Indication: LEFT VENTRICULAR FAILURE
     Dosage: 20.00 MG-1.00 TIMES PER 1.0 DAY
     Dates: start: 20110304, end: 20110307

REACTIONS (8)
  - LETHARGY [None]
  - PROTHROMBIN TIME PROLONGED [None]
  - ABDOMINAL PAIN UPPER [None]
  - WHITE BLOOD CELL COUNT INCREASED [None]
  - LIVER INJURY [None]
  - ALANINE AMINOTRANSFERASE INCREASED [None]
  - C-REACTIVE PROTEIN INCREASED [None]
  - SERUM FERRITIN INCREASED [None]
